FAERS Safety Report 23962163 (Version 2)
Quarter: 2024Q2

REPORT INFORMATION
  Report Type: Spontaneous
  Country: DE (occurrence: DE)
  Receive Date: 20240611
  Receipt Date: 20240613
  Transmission Date: 20240716
  Serious: Yes (Other)
  Sender: FDA-Public Use
  Company Number: None

PATIENT
  Age: 50 Year
  Sex: Female
  Weight: 63 kg

DRUGS (1)
  1. VALSARTAN [Suspect]
     Active Substance: VALSARTAN
     Indication: Hypertension
     Dosage: 80 MG, TOTAL (80 MGEINNAHME MORGENS)
     Route: 048
     Dates: start: 20240528, end: 20240528

REACTIONS (3)
  - Hypertensive crisis [Recovered/Resolved]
  - Heart rate increased [Recovered/Resolved]
  - Labelled drug-food interaction medication error [Recovering/Resolving]

NARRATIVE: CASE EVENT DATE: 20240528
